FAERS Safety Report 23904695 (Version 1)
Quarter: 2024Q2

REPORT INFORMATION
  Report Type: Spontaneous
  Country: EG (occurrence: EG)
  Receive Date: 20240527
  Receipt Date: 20240527
  Transmission Date: 20240716
  Serious: Yes (Disabling, Other)
  Sender: FDA-Public Use
  Company Number: EG-002147023-NVSC2024EG109132

PATIENT
  Age: 25 Year
  Sex: Male

DRUGS (1)
  1. VOTRIENT [Suspect]
     Active Substance: PAZOPANIB HYDROCHLORIDE
     Indication: Soft tissue sarcoma
     Dosage: 800 MG, Q24H
     Route: 048

REACTIONS (4)
  - Hair colour changes [Recovered/Resolved]
  - Skin hypopigmentation [Recovered/Resolved]
  - Skin exfoliation [Recovered/Resolved]
  - Azoospermia [Recovered/Resolved]

NARRATIVE: CASE EVENT DATE: 20240504
